FAERS Safety Report 18229729 (Version 1)
Quarter: 2020Q3

REPORT INFORMATION
  Report Type: Spontaneous
  Country: FR (occurrence: FR)
  Receive Date: 20200903
  Receipt Date: 20200903
  Transmission Date: 20201103
  Serious: Yes (Hospitalization)
  Sender: FDA-Public Use
  Company Number: FR-TEVA-2020-FR-1822399

PATIENT
  Age: 61 Year
  Sex: Male
  Weight: 93 kg

DRUGS (1)
  1. VANCOMYCIN [Suspect]
     Active Substance: VANCOMYCIN
     Indication: STAPHYLOCOCCAL MEDIASTINITIS
     Route: 042
     Dates: start: 20161109, end: 20161114

REACTIONS (1)
  - Acute kidney injury [Recovered/Resolved]

NARRATIVE: CASE EVENT DATE: 20161113
